FAERS Safety Report 17191768 (Version 1)
Quarter: 2019Q4

REPORT INFORMATION
  Report Type: Spontaneous
  Country: SE (occurrence: SE)
  Receive Date: 20191223
  Receipt Date: 20191223
  Transmission Date: 20200122
  Serious: Yes (Hospitalization)
  Sender: FDA-Public Use
  Company Number: SE-PFIZER INC-2019547435

PATIENT
  Age: 15 Year
  Sex: Female
  Weight: 47 kg

DRUGS (5)
  1. DIVISUN [Suspect]
     Active Substance: CHOLECALCIFEROL
     Route: 048
     Dates: start: 20180522, end: 20180522
  2. ABILIFY [Suspect]
     Active Substance: ARIPIPRAZOLE
     Dosage: UNK (25 MG, 2-3 PCS PROBABLY 2)
     Route: 048
     Dates: start: 20180522, end: 20180522
  3. PROPAVAN [Suspect]
     Active Substance: PROPIOMAZINE
     Dosage: 50 MG, UNK (2 PCS)
     Route: 048
     Dates: start: 20180522, end: 20180522
  4. SERTRALINE HCL [Suspect]
     Active Substance: SERTRALINE HYDROCHLORIDE
     Dosage: UNK (2-3)
     Route: 048
     Dates: start: 20180522, end: 20180522
  5. LAMOTRIGINE. [Suspect]
     Active Substance: LAMOTRIGINE
     Dosage: UNK (2-3 PCS)
     Route: 048
     Dates: start: 20180522, end: 20180522

REACTIONS (3)
  - Intentional self-injury [Unknown]
  - Intentional overdose [Unknown]
  - Fatigue [Unknown]

NARRATIVE: CASE EVENT DATE: 20180522
